FAERS Safety Report 12818804 (Version 4)
Quarter: 2019Q4

REPORT INFORMATION
  Report Type: Spontaneous
  Country: JP (occurrence: JP)
  Receive Date: 20161006
  Receipt Date: 20191201
  Transmission Date: 20200122
  Serious: Yes (Hospitalization, Other)
  Sender: FDA-Public Use
  Company Number: JP-UNITED THERAPEUTICS-UNT-2016-014190

PATIENT
  Age: 42 Year
  Sex: Female
  Weight: 49.8 kg

DRUGS (32)
  1. REMODULIN [Suspect]
     Active Substance: TREPROSTINIL
     Indication: COLLAGEN DISORDER
  2. REMODULIN [Suspect]
     Active Substance: TREPROSTINIL
     Indication: SYSTEMIC LUPUS ERYTHEMATOSUS
     Dosage: 0.004 ?G/KG, CONTINUING
     Route: 058
  3. FEBURIC [Concomitant]
     Active Substance: FEBUXOSTAT
     Indication: HYPERURICAEMIA
     Dosage: UNK
     Route: 048
  4. PROMAC [Concomitant]
     Active Substance: NITROFURANTOIN
     Indication: CHRONIC GASTRITIS
     Dosage: UNK
     Route: 048
  5. ADCIRCA [Concomitant]
     Active Substance: TADALAFIL
     Indication: PULMONARY ARTERIAL HYPERTENSION
     Dosage: UNK
     Route: 048
     Dates: start: 201001
  6. PREDONINE [Concomitant]
     Active Substance: PREDNISOLONE
     Indication: CONNECTIVE TISSUE DISORDER
  7. WARFARIN [Concomitant]
     Active Substance: WARFARIN
     Indication: PULMONARY ARTERIAL HYPERTENSION
     Dosage: UNK
     Route: 048
  8. MUCOSTA [Concomitant]
     Active Substance: REBAMIPIDE
     Indication: CHRONIC GASTRITIS
     Dosage: UNK
     Route: 048
  9. OPSUMIT [Concomitant]
     Active Substance: MACITENTAN
     Indication: PULMONARY ARTERIAL HYPERTENSION
     Dosage: UNK
     Route: 048
     Dates: start: 20160916
  10. REMODULIN [Suspect]
     Active Substance: TREPROSTINIL
     Indication: SYSTEMIC LUPUS ERYTHEMATOSUS
     Dosage: 0.003 ?G/KG, UNK
     Route: 041
     Dates: start: 20160920
  11. TRACLEER [Concomitant]
     Active Substance: BOSENTAN
     Indication: COLLAGEN DISORDER
  12. SLOW-K [Concomitant]
     Active Substance: POTASSIUM CHLORIDE
     Indication: HYPOKALAEMIA
     Dosage: UNK
     Route: 048
  13. TRACLEER [Concomitant]
     Active Substance: BOSENTAN
     Indication: PULMONARY ARTERIAL HYPERTENSION
     Dosage: UNK
     Route: 048
     Dates: start: 200704, end: 20160915
  14. FLUNITRAZEPAM [Concomitant]
     Active Substance: FLUNITRAZEPAM
     Indication: INSOMNIA
     Dosage: UNK
     Route: 048
  15. FUROSEMIDE. [Concomitant]
     Active Substance: FUROSEMIDE
     Indication: RIGHT VENTRICULAR FAILURE
     Dosage: UNK
     Route: 048
  16. REMODULIN [Suspect]
     Active Substance: TREPROSTINIL
     Indication: CONNECTIVE TISSUE DISORDER
     Dosage: UNK
     Route: 041
     Dates: start: 20150510, end: 20160906
  17. REMODULIN [Suspect]
     Active Substance: TREPROSTINIL
     Indication: PULMONARY ARTERIAL HYPERTENSION
     Dosage: 0.003 ?G/KG, CONTINUING
     Route: 058
  18. TRACLEER [Concomitant]
     Active Substance: BOSENTAN
     Indication: CONNECTIVE TISSUE DISORDER
  19. ADCIRCA [Concomitant]
     Active Substance: TADALAFIL
     Indication: COLLAGEN DISORDER
  20. ALDACTONE A [Concomitant]
     Active Substance: SPIRONOLACTONE
     Indication: RIGHT VENTRICULAR FAILURE
     Dosage: UNK
     Route: 048
  21. PREDONINE [Concomitant]
     Active Substance: PREDNISOLONE
     Indication: PULMONARY ARTERIAL HYPERTENSION
     Dosage: UNK
     Route: 048
  22. PREDONINE [Concomitant]
     Active Substance: PREDNISOLONE
     Indication: COLLAGEN DISORDER
  23. NEXIUM [Concomitant]
     Active Substance: ESOMEPRAZOLE MAGNESIUM
     Indication: GASTROOESOPHAGEAL REFLUX DISEASE
     Dosage: UNK
     Route: 048
  24. OPSUMIT [Concomitant]
     Active Substance: MACITENTAN
     Indication: CONNECTIVE TISSUE DISORDER
  25. REMODULIN [Suspect]
     Active Substance: TREPROSTINIL
     Indication: PULMONARY ARTERIAL HYPERTENSION
  26. REMODULIN [Suspect]
     Active Substance: TREPROSTINIL
     Indication: COLLAGEN DISORDER
  27. ADCIRCA [Concomitant]
     Active Substance: TADALAFIL
     Indication: CONNECTIVE TISSUE DISORDER
  28. WARFARIN [Concomitant]
     Active Substance: WARFARIN
     Indication: COLLAGEN DISORDER
  29. FERROMIA [Concomitant]
     Active Substance: SODIUM FERROUS CITRATE
     Indication: ANAEMIA
     Dosage: UNK
     Route: 048
  30. REMODULIN [Suspect]
     Active Substance: TREPROSTINIL
     Indication: CONNECTIVE TISSUE DISORDER
     Dosage: 0.005 ?G/KG, CONTINUING
     Route: 058
     Dates: start: 20160906, end: 20170328
  31. WARFARIN [Concomitant]
     Active Substance: WARFARIN
     Indication: CONNECTIVE TISSUE DISORDER
  32. OPSUMIT [Concomitant]
     Active Substance: MACITENTAN
     Indication: COLLAGEN DISORDER

REACTIONS (9)
  - Infusion site pruritus [Unknown]
  - Pyelonephritis [Recovering/Resolving]
  - Infusion site pain [Recovering/Resolving]
  - Device related infection [Recovering/Resolving]
  - Pneumonia [Not Recovered/Not Resolved]
  - Infusion site swelling [Unknown]
  - Urinary tract infection [Recovered/Resolved]
  - Infusion site erythema [Recovering/Resolving]
  - Infusion site warmth [Unknown]

NARRATIVE: CASE EVENT DATE: 20151130
